FAERS Safety Report 8450530-0 (Version None)
Quarter: 2012Q2

REPORT INFORMATION
  Report Type: 
  Country: None (occurrence: None)
  Receive Date: 20120614
  Receipt Date: 20120614
  Transmission Date: 20120825
  Serious: Yes (Death)
  Sender: FDA-Public Use
  Company Number: None

PATIENT
  Age: 73 Year
  Sex: Male
  Weight: 63.5036 kg

DRUGS (2)
  1. MULTAQ [Suspect]
     Indication: CARDIOVERSION
  2. LEVAQUIN [Suspect]

REACTIONS (1)
  - DRUG INTERACTION [None]
